FAERS Safety Report 16532882 (Version 1)
Quarter: 2019Q3

REPORT INFORMATION
  Report Type: Spontaneous
  Country: US (occurrence: US)
  Receive Date: 20190704
  Receipt Date: 20190704
  Transmission Date: 20191004
  Serious: No
  Sender: FDA-Public Use
  Company Number: US-RECKITT BENCKISER HEALTHCARE INT LIMITED-RB-83646-2019

PATIENT
  Age: 80 Year
  Sex: Female

DRUGS (2)
  1. MUCINEX DM MAXIMUM STRENGTH [Suspect]
     Active Substance: DEXTROMETHORPHAN HYDROBROMIDE\GUAIFENESIN
     Dosage: 2400 MILLIGRAM, BID
     Route: 048
     Dates: start: 20190320
  2. MUCINEX DM MAXIMUM STRENGTH [Suspect]
     Active Substance: DEXTROMETHORPHAN HYDROBROMIDE\GUAIFENESIN
     Indication: PRODUCT USED FOR UNKNOWN INDICATION
     Dosage: 2400 MILLIGRAM, BID
     Route: 048
     Dates: start: 20190306, end: 20190309

REACTIONS (5)
  - Dry mouth [Unknown]
  - Skin discolouration [Unknown]
  - Hypoaesthesia [Unknown]
  - Erythema [Unknown]
  - Dizziness [Unknown]
